FAERS Safety Report 6601097-0 (Version None)
Quarter: 2010Q1

REPORT INFORMATION
  Report Type: 
  Country: None (occurrence: None)
  Receive Date: 20100224
  Receipt Date: 20100224
  Transmission Date: 20100710
  Serious: Yes (Other)
  Sender: FDA-Public Use
  Company Number: None

PATIENT
  Age: 54 Year
  Sex: Female
  Weight: 63.05 kg

DRUGS (1)
  1. SAVELLA [Suspect]
     Indication: FIBROMYALGIA
     Dosage: 12.5MG. BID X 3DAY 25MG. BID X4DAYS 50MG. BID X7DAYS BID PO
     Route: 048

REACTIONS (4)
  - FEAR [None]
  - HYPERVIGILANCE [None]
  - NAUSEA [None]
  - TREMOR [None]
